FAERS Safety Report 8170976-8 (Version None)
Quarter: 2012Q1

REPORT INFORMATION
  Report Type: 
  Country: None (occurrence: None)
  Receive Date: 20120228
  Receipt Date: 20120222
  Transmission Date: 20120608
  Serious: Yes (Other)
  Sender: FDA-Public Use
  Company Number: US-PFIZER INC-2012047603

PATIENT
  Sex: Female
  Weight: 81.633 kg

DRUGS (7)
  1. LYRICA [Suspect]
     Indication: PAIN
     Dosage: 100 MG, 3X/DAY
     Route: 048
     Dates: end: 20110901
  2. NUCYNTA [Concomitant]
     Dosage: FOUR TIMES A DAY
  3. CYMBALTA [Concomitant]
     Dosage: 60 MG, 1X/DAY
  4. LEVOTHYROXINE [Concomitant]
     Indication: HYPOTHYROIDISM
     Dosage: ONCE A DAY
  5. NORTRIPTYLINE [Concomitant]
     Dosage: ONCE A DAY
  6. LYRICA [Suspect]
     Indication: FIBROMYALGIA
     Dosage: 50 MG, 3X/DAY
     Route: 048
     Dates: start: 20101101
  7. VITAMIN D [Concomitant]
     Dosage: ONCE A WEEK

REACTIONS (9)
  - WITHDRAWAL SYNDROME [None]
  - PAROSMIA [None]
  - NAUSEA [None]
  - MOBILITY DECREASED [None]
  - HYPERHIDROSIS [None]
  - FEELING OF BODY TEMPERATURE CHANGE [None]
  - WEIGHT DECREASED [None]
  - PAIN [None]
  - DRUG INEFFECTIVE [None]
